FAERS Safety Report 5232674-X (Version None)
Quarter: 2007Q1

REPORT INFORMATION
  Report Type: 
  Country: None (occurrence: None)
  Receive Date: 20070206
  Receipt Date: 20070206
  Transmission Date: 20070707
  Serious: Yes (Death, Life-Threatening, Hospitalization)
  Sender: FDA-Public Use
  Company Number: None

PATIENT
  Age: 68 Year
  Sex: Male
  Weight: 80 kg

DRUGS (9)
  1. PREDNISONE [Suspect]
     Indication: CHRONIC OBSTRUCTIVE PULMONARY DISEASE
     Dosage: 10 MG QD PO
     Route: 048
     Dates: start: 20050404, end: 20050418
  2. ALBUTEROL [Concomitant]
  3. ASPIRIN [Concomitant]
  4. ENTOCORT EC [Concomitant]
  5. FORMOTEROL INHALER [Concomitant]
  6. GLIPIZIDE [Concomitant]
  7. INSULIN [Concomitant]
  8. METOCLOPRAMIDE [Concomitant]
  9. THEOPHYLLINE [Concomitant]

REACTIONS (13)
  - ABDOMINAL PAIN [None]
  - BODY TEMPERATURE INCREASED [None]
  - CHRONIC OBSTRUCTIVE PULMONARY DISEASE [None]
  - CONDITION AGGRAVATED [None]
  - DIARRHOEA [None]
  - DUODENAL ULCER PERFORATION [None]
  - GASTRIC ULCER PERFORATION [None]
  - HYPOTENSION [None]
  - NAUSEA [None]
  - PERITONITIS [None]
  - PNEUMONIA [None]
  - SMALL INTESTINAL OBSTRUCTION [None]
  - VOMITING [None]
